FAERS Safety Report 10489560 (Version 1)
Quarter: 2014Q3

REPORT INFORMATION
  Report Type: Spontaneous
  Country: US (occurrence: None)
  Receive Date: 20140815
  Receipt Date: 20140815
  Transmission Date: 20150326
  Serious: Yes (Other)
  Sender: FDA-Public Use
  Company Number: ADR-2013-02164

PATIENT
  Age: 14 Year
  Sex: Female

DRUGS (1)
  1. LIORESAL [Suspect]
     Active Substance: BACLOFEN
     Indication: MUSCLE SPASTICITY

REACTIONS (6)
  - Anxiety [None]
  - Clonus [None]
  - Drug withdrawal syndrome [None]
  - Therapeutic response decreased [None]
  - Muscle spasticity [None]
  - Tachycardia [None]

NARRATIVE: CASE EVENT DATE: 20131119
